FAERS Safety Report 10648322 (Version 1)
Quarter: 2014Q4

REPORT INFORMATION
  Report Type: Spontaneous
  Country: US (occurrence: None)
  Receive Date: 20141203
  Receipt Date: 20141203
  Transmission Date: 20150529
  Serious: Yes (Hospitalization)
  Sender: FDA-Public Use
  Company Number: 1435245

PATIENT
  Age: 47 Year
  Sex: Male

DRUGS (4)
  1. CISPLATIN (CISPLATIN) [Concomitant]
     Active Substance: CISPLATIN
  2. HERCEPTIN [Suspect]
     Active Substance: TRASTUZUMAB
     Indication: OESOPHAGEAL ADENOCARCINOMA
     Dosage: INTRAVENOUS (NOT OTHERWISE SPECIFIED)
     Route: 042
     Dates: start: 201308, end: 201312
  3. XELODA [Suspect]
     Active Substance: CAPECITABINE
     Indication: OESOPHAGEAL ADENOCARCINOMA
     Dates: start: 201308, end: 201312
  4. DOCETAXEL (DOCETAXEL) [Concomitant]
     Active Substance: DOCETAXEL

REACTIONS (22)
  - Swelling [None]
  - Disease progression [None]
  - Neoplasm progression [None]
  - Rash macular [None]
  - Weight decreased [None]
  - Dysphagia [None]
  - Lethargy [None]
  - Rash [None]
  - Palmar-plantar erythrodysaesthesia syndrome [None]
  - Neutropenia [None]
  - Dry skin [None]
  - Malaise [None]
  - Neuropathy peripheral [None]
  - Tinnitus [None]
  - Sleep disorder [None]
  - Vomiting [None]
  - Decreased appetite [None]
  - Hypotension [None]
  - Diarrhoea [None]
  - Nausea [None]
  - Pyrexia [None]
  - Back pain [None]

NARRATIVE: CASE EVENT DATE: 201311
